FAERS Safety Report 6197614-8 (Version None)
Quarter: 2009Q2

REPORT INFORMATION
  Report Type: 
  Country: None (occurrence: None)
  Receive Date: 20090521
  Receipt Date: 20090506
  Transmission Date: 20091009
  Serious: Yes (Life-Threatening, Other)
  Sender: FDA-Public Use
  Company Number: US-BAYER-200920212NA

PATIENT
  Age: 46 Year
  Sex: Female
  Weight: 95 kg

DRUGS (12)
  1. MAGNEVIST [Suspect]
     Indication: HEADACHE
     Dosage: TOTAL DAILY DOSE: 20 ML
     Route: 042
     Dates: start: 20090502, end: 20090502
  2. AMBIEN [Concomitant]
  3. SENOKOT [Concomitant]
  4. PEPCID [Concomitant]
  5. NOVOLIN R [Concomitant]
  6. DECASONE [Concomitant]
  7. ALLEGRA [Concomitant]
  8. TYLENOL [Concomitant]
  9. ALBUTEROL [Concomitant]
  10. LOVENOX [Concomitant]
  11. COZAAR [Concomitant]
  12. SYMBICORT [Concomitant]

REACTIONS (3)
  - DYSPNOEA [None]
  - RESPIRATORY ARREST [None]
  - SWOLLEN TONGUE [None]
